FAERS Safety Report 8135642-3 (Version None)
Quarter: 2012Q1

REPORT INFORMATION
  Report Type: 
  Country: None (occurrence: None)
  Receive Date: 20120103
  Receipt Date: 20111025
  Transmission Date: 20120608
  Serious: No
  Sender: FDA-Public Use
  Company Number: AE-2011-002654

PATIENT
  Age: 61 Year
  Sex: Male
  Weight: 111.1313 kg

DRUGS (7)
  1. TRIAMTERENE HCTZ (DYAZIDE) [Concomitant]
  2. RIBASPHERE [Concomitant]
  3. ASCORBIC ACID [Concomitant]
  4. PEGASYS [Concomitant]
  5. PREVACID [Concomitant]
  6. MULTIVITAMIN [Concomitant]
  7. INCIVEK [Suspect]
     Dosage: 2250 MG (750 MG, 3 IN 1 D), ORAL
     Route: 048
     Dates: start: 20111017

REACTIONS (2)
  - INAPPROPRIATE SCHEDULE OF DRUG ADMINISTRATION [None]
  - PRURITUS [None]
